FAERS Safety Report 5551077-1 (Version None)
Quarter: 2007Q4

REPORT INFORMATION
  Report Type: 
  Country: None (occurrence: None)
  Receive Date: 20071212
  Receipt Date: 20071204
  Transmission Date: 20080405
  Serious: Yes (Hospitalization, Other)
  Sender: FDA-Public Use
  Company Number: CH-BRISTOL-MYERS SQUIBB COMPANY-13993530

PATIENT
  Age: 83 Year
  Sex: Male

DRUGS (6)
  1. SOTALOL HCL [Suspect]
     Route: 048
  2. GLUCOPHAGE [Suspect]
     Route: 048
     Dates: end: 20071026
  3. GLYBURIDE [Suspect]
     Dosage: STRENGTH = 5MG
     Route: 048
     Dates: end: 20071026
  4. CONCOR [Suspect]
     Dosage: STRENGHT=5MG
     Route: 048
  5. PRADIF [Concomitant]
     Dosage: STRENGHT=0.4MG CAPSULES
     Route: 048
  6. MODURETIC TABS [Concomitant]
     Route: 048

REACTIONS (2)
  - HYPOGLYCAEMIC COMA [None]
  - PNEUMONIA [None]
